FAERS Safety Report 19919550 (Version 5)
Quarter: 2022Q3

REPORT INFORMATION
  Report Type: Report from Study
  Country: GB (occurrence: GB)
  Receive Date: 20211005
  Receipt Date: 20220714
  Transmission Date: 20221027
  Serious: Yes (Other)
  Sender: FDA-Public Use
  Company Number: GB-SHIRE-GB201941479

PATIENT
  Age: 84 Year
  Sex: Male

DRUGS (3)
  1. HUMAN IMMUNOGLOBULIN G\HYALURONIDASE RECOMBINANT HUMAN [Suspect]
     Active Substance: HUMAN IMMUNOGLOBULIN G\HYALURONIDASE RECOMBINANT HUMAN
     Indication: Chronic inflammatory demyelinating polyradiculoneuropathy
     Dosage: UNK
     Route: 058
     Dates: start: 20190703
  2. HUMAN IMMUNOGLOBULIN G\HYALURONIDASE RECOMBINANT HUMAN [Suspect]
     Active Substance: HUMAN IMMUNOGLOBULIN G\HYALURONIDASE RECOMBINANT HUMAN
     Indication: Primary immunodeficiency syndrome
     Dosage: 30 GRAM
     Route: 058
     Dates: start: 201907
  3. HUMAN IMMUNOGLOBULIN G\HYALURONIDASE RECOMBINANT HUMAN [Suspect]
     Active Substance: HUMAN IMMUNOGLOBULIN G\HYALURONIDASE RECOMBINANT HUMAN
     Dosage: 100 MILLIGRAM
     Route: 058
     Dates: start: 201906

REACTIONS (13)
  - Prostate cancer [Recovering/Resolving]
  - Depressed mood [Unknown]
  - Scar [Unknown]
  - Tooth fracture [Unknown]
  - Blood test abnormal [Unknown]
  - Scan abnormal [Unknown]
  - Dyspnoea [Unknown]
  - Pain in extremity [Unknown]
  - Rash [Unknown]
  - Dizziness [Unknown]
  - Infusion site swelling [Unknown]
  - Infusion site erythema [Unknown]
  - Product storage error [Unknown]

NARRATIVE: CASE EVENT DATE: 20200511
